FAERS Safety Report 5396973-3 (Version None)
Quarter: 2007Q3

REPORT INFORMATION
  Report Type: 
  Country: None (occurrence: None)
  Receive Date: 20070725
  Receipt Date: 20070713
  Transmission Date: 20080115
  Serious: Yes (Death)
  Sender: FDA-Public Use
  Company Number: GB-BAUSCH-2007BL002346

PATIENT
  Age: 72 Year
  Sex: Male
  Weight: 50 kg

DRUGS (12)
  1. PREDNISOLONE SODIUM PHOSPHATE [Suspect]
     Indication: PROSTATE CANCER METASTATIC
     Dates: start: 20070522, end: 20070523
  2. MITOXANTRONE [Suspect]
     Indication: PROSTATE CANCER METASTATIC
     Dates: start: 20070522, end: 20070523
  3. AMITRIPTYLINE HCL [Concomitant]
     Route: 048
  4. AMLODIPINE [Concomitant]
     Route: 048
  5. ASPIRIN [Concomitant]
     Route: 048
  6. ATENOLOL [Concomitant]
     Route: 048
  7. FUROSEMIDE [Concomitant]
     Route: 048
  8. MST CONTINUS ^ASTA MEDICA^ [Concomitant]
     Route: 048
  9. OMEPRAZOLE [Concomitant]
     Route: 048
  10. RAMIPRIL [Concomitant]
     Route: 048
  11. SIMVASTATIN [Concomitant]
     Route: 048
  12. STILBOESTROL [Concomitant]
     Dates: end: 20070501

REACTIONS (1)
  - ENTEROCOLITIS [None]
